FAERS Safety Report 16413020 (Version 5)
Quarter: 2019Q3

REPORT INFORMATION
  Report Type: Spontaneous
  Country: DE (occurrence: DE)
  Receive Date: 20190611
  Receipt Date: 20190926
  Transmission Date: 20191004
  Serious: Yes (Other)
  Sender: FDA-Public Use
  Company Number: DE-AUROBINDO-AUR-APL-2019-033485

PATIENT
  Age: 67 Year
  Sex: Female
  Weight: 68 kg

DRUGS (9)
  1. CEFURAX [Concomitant]
     Active Substance: CEFUROXIME AXETIL
     Indication: PRODUCT USED FOR UNKNOWN INDICATION
     Dosage: UNK
     Route: 048
     Dates: start: 20160512
  2. PANTOPRA Q [Concomitant]
     Indication: REFLUX GASTRITIS
     Dosage: UNK
     Route: 048
     Dates: start: 20190729
  3. VALSARTAN-COMP PUREN 80/12.5MG [Suspect]
     Active Substance: HYDROCHLOROTHIAZIDE\VALSARTAN
     Indication: PRODUCT USED FOR UNKNOWN INDICATION
     Dosage: DAILY
     Route: 065
     Dates: end: 20181231
  4. SAB SIMPLEX [Concomitant]
     Indication: FLATULENCE
     Dosage: WHEN NEEDED
     Route: 048
     Dates: start: 20180827
  5. INFLUVAC TETRA [Concomitant]
     Active Substance: INFLUENZA VIRUS VACCINE QUADRIVALENT TYPE A+B
     Indication: INFLUENZA
     Dosage: UNK
     Route: 065
     Dates: start: 20181205
  6. IBUFLAM [Concomitant]
     Indication: CERVICOBRACHIAL SYNDROME
     Dosage: UNK
     Route: 048
     Dates: start: 20160121
  7. CO-DIOVAN [Concomitant]
     Active Substance: HYDROCHLOROTHIAZIDE\VALSARTAN
     Indication: PRODUCT USED FOR UNKNOWN INDICATION
     Dosage: UNK
     Route: 065
     Dates: start: 20001130, end: 201404
  8. DEKRISTOL [Concomitant]
     Active Substance: CHOLECALCIFEROL
     Indication: OSTEOPOROSIS
     Dosage: UNK
     Route: 048
     Dates: start: 20180827
  9. VALSARTAN-ACTAVIS COMP 80 MG/12.5 MG FILM COATED TABLETS [Suspect]
     Active Substance: HYDROCHLOROTHIAZIDE\VALSARTAN
     Indication: PRODUCT USED FOR UNKNOWN INDICATION
     Dosage: 80 MG/12.5 MG
     Route: 048
     Dates: start: 20150511

REACTIONS (7)
  - Infection [Unknown]
  - Breast cancer [Unknown]
  - Skin cancer [Unknown]
  - Arthralgia [Unknown]
  - Vertigo [Unknown]
  - Deep vein thrombosis [Unknown]
  - Asthenia [Unknown]

NARRATIVE: CASE EVENT DATE: 201509
